FAERS Safety Report 8430169-3 (Version None)
Quarter: 2012Q2

REPORT INFORMATION
  Report Type: 
  Country: None (occurrence: None)
  Receive Date: 20120612
  Receipt Date: 20120528
  Transmission Date: 20120825
  Serious: Yes (Hospitalization)
  Sender: FDA-Public Use
  Company Number: BR-ROCHE-744030

PATIENT
  Sex: Female
  Weight: 97 kg

DRUGS (12)
  1. METHOTREXATE [Suspect]
     Indication: PRODUCT USED FOR UNKNOWN INDICATION
     Route: 065
  2. METHOTREXATE [Suspect]
     Route: 065
  3. OXYCONTIN [Concomitant]
  4. METFORMIN HCL [Concomitant]
  5. DIAMICRON [Concomitant]
  6. AMARYL [Concomitant]
     Indication: DIABETES MELLITUS
  7. METFORMIN HCL [Concomitant]
  8. ASPIRIN [Concomitant]
  9. ACTEMRA [Suspect]
     Indication: RHEUMATOID ARTHRITIS
     Dosage: LAST INFUSION PRIOR TO EVENT: 08/MAY/2012
     Route: 042
  10. ACTEMRA [Suspect]
     Route: 042
  11. DIAZEPAM [Suspect]
     Indication: PRODUCT USED FOR UNKNOWN INDICATION
     Route: 065
  12. FLUOXETINE [Concomitant]

REACTIONS (19)
  - EAR INFECTION [None]
  - SWELLING [None]
  - FATIGUE [None]
  - MEMORY IMPAIRMENT [None]
  - SKIN HAEMORRHAGE [None]
  - CONFUSIONAL STATE [None]
  - PAROTITIS [None]
  - FINGER DEFORMITY [None]
  - DRUG INEFFECTIVE [None]
  - HYPERSENSITIVITY [None]
  - DRUG HYPERSENSITIVITY [None]
  - MICROANGIOPATHY [None]
  - CELLULITIS [None]
  - PAIN [None]
  - OEDEMA PERIPHERAL [None]
  - ROAD TRAFFIC ACCIDENT [None]
  - BONE DISORDER [None]
  - NASOPHARYNGITIS [None]
  - CARDIAC DISORDER [None]
